FAERS Safety Report 9014497 (Version 2)
Quarter: 2013Q3

REPORT INFORMATION
  Report Type: Report from Study
  Country: US (occurrence: US)
  Receive Date: 20130115
  Receipt Date: 20130701
  Transmission Date: 20140515
  Serious: Yes (Hospitalization)
  Sender: FDA-Public Use
  Company Number: US-PFIZER INC-2012318881

PATIENT
  Age: 68 Year
  Sex: Male

DRUGS (14)
  1. SUNITINIB MALATE [Suspect]
     Indication: PROSTATE CANCER
     Dosage: 37.5 MG, 1X/DAY
     Route: 048
     Dates: start: 20120227, end: 20120422
  2. SUNITINIB MALATE [Suspect]
     Dosage: 37.5 MG, 1X/DAY
     Route: 048
     Dates: start: 20120227
  3. BENICAR [Suspect]
     Dosage: 20 MG, DAILY
     Route: 048
  4. LIPITOR [Suspect]
     Dosage: 40 MG, AT BEDTIME
     Route: 048
  5. ABIRATERONE ACETATE [Suspect]
     Indication: PROSTATE CANCER
     Dosage: 1000 MG, 1X/DAY
     Route: 048
     Dates: start: 20110603
  6. ASPIRIN [Suspect]
     Dosage: 81 MG, DAILY
     Route: 048
  7. BYSTOLIC [Suspect]
     Dosage: 20 MG, DAILY
     Route: 048
  8. GLYBURIDE [Suspect]
     Dosage: 10 MG, 2X/DAY
     Route: 048
  9. IMDUR [Suspect]
     Dosage: 30 MG, DAILY
     Route: 048
  10. METHADONE HYDROCHLORIDE [Suspect]
     Dosage: 5 MG, EVERY 8 HOURS
     Route: 048
     Dates: start: 20110307
  11. NITROGLYCERIN [Suspect]
     Indication: CHEST PAIN
     Dosage: 0.4 MG, P,R.N.
     Route: 060
  12. PREDNISONE [Suspect]
     Indication: PROSTATE CANCER
     Dosage: 5 MG, DAILY
     Route: 048
  13. NUCYNTA [Suspect]
     Dosage: 75 MG, EVERY 4 HRS
     Route: 048
  14. SENOKOT-S [Concomitant]
     Dosage: 2 DF, 2X/DAY
     Route: 048

REACTIONS (1)
  - Muscular weakness [Recovered/Resolved]
